FAERS Safety Report 13383821 (Version 4)
Quarter: 2021Q4

REPORT INFORMATION
  Report Type: Spontaneous
  Country: LB (occurrence: LB)
  Receive Date: 20170329
  Receipt Date: 20211130
  Transmission Date: 20220303
  Serious: Yes (Death, Hospitalization)
  Sender: FDA-Public Use
  Company Number: LB-PFIZER INC-2017133694

PATIENT
  Age: 64 Year
  Sex: Female

DRUGS (4)
  1. IBRANCE [Suspect]
     Active Substance: PALBOCICLIB
     Indication: Breast cancer metastatic
     Dosage: 125 MG, 1X/DAY
     Route: 048
     Dates: start: 20170104, end: 20170322
  2. ALDACTONE [Concomitant]
     Active Substance: SPIRONOLACTONE
     Dosage: 1 TABLET/48HOURS
  3. RAMIPRIL [Concomitant]
     Active Substance: RAMIPRIL
     Dosage: 1 TABLET/24HOURS
  4. FASLODEX [Concomitant]
     Active Substance: FULVESTRANT
     Dosage: UNK

REACTIONS (3)
  - Infection [Fatal]
  - Hypotension [Fatal]
  - Confusional state [Fatal]

NARRATIVE: CASE EVENT DATE: 20170322
